FAERS Safety Report 4864505-1 (Version None)
Quarter: 2005Q4

REPORT INFORMATION
  Report Type: 
  Country: None (occurrence: None)
  Receive Date: 20051222
  Receipt Date: 20051214
  Transmission Date: 20060501
  Serious: Yes (Hospitalization)
  Sender: FDA-Public Use
  Company Number: JP-ROCHE-428517

PATIENT
  Age: 35 Year
  Sex: Male
  Weight: 97 kg

DRUGS (4)
  1. INTERFERON ALFA [Suspect]
     Dosage: 6X10E6 UNITS DAILY FOR TWO WEEKS
     Route: 065
     Dates: end: 20030906
  2. RIBAVIRIN [Suspect]
     Dosage: 800 MG.
     Route: 065
     Dates: end: 20030906
  3. INTERFERON NOS [Suspect]
     Dosage: REPORTED AS NATURAL INTERFERON.
     Route: 065
  4. INTERFERON BETA [Suspect]
     Dosage: 3X10E6 UNITS TWICE DAILY FOR TWO WEEKS.
     Route: 065
     Dates: start: 20030312

REACTIONS (6)
  - BLOOD GLUCOSE INCREASED [None]
  - DIABETES MELLITUS NON-INSULIN-DEPENDENT [None]
  - HEPATIC FIBROSIS [None]
  - HEPATIC NECROSIS [None]
  - HEPATIC STEATOSIS [None]
  - HYPERINSULINAEMIA [None]
